FAERS Safety Report 21197039 (Version 2)
Quarter: 2022Q3

REPORT INFORMATION
  Report Type: Spontaneous
  Country: JP (occurrence: JP)
  Receive Date: 20220810
  Receipt Date: 20220818
  Transmission Date: 20221026
  Serious: Yes (Other)
  Sender: FDA-Public Use
  Company Number: JP-NBI-S202200199BIPI

PATIENT
  Age: 78 Year
  Sex: Male

DRUGS (1)
  1. LINAGLIPTIN [Suspect]
     Active Substance: LINAGLIPTIN
     Indication: Product used for unknown indication
     Route: 048

REACTIONS (3)
  - Pneumonia [Unknown]
  - Factor V inhibition [Recovering/Resolving]
  - Pemphigoid [Recovering/Resolving]
